FAERS Safety Report 8937585 (Version 1)
Quarter: 2012Q4

REPORT INFORMATION
  Report Type: 
  Country: DK (occurrence: FR)
  Receive Date: 20121130
  Receipt Date: 20121130
  Transmission Date: 20130627
  Serious: Yes (Hospitalization)
  Sender: FDA-Public Use
  Company Number: FR-FRI-1000040712

PATIENT
  Age: 80 Year
  Sex: Male

DRUGS (15)
  1. ESCITALOPRAM [Suspect]
     Dosage: 10 mg
     Route: 048
     Dates: start: 20120913
  2. COLCHIMAX [Interacting]
     Indication: PERICARDIAL EFFUSION
     Route: 048
     Dates: start: 20120907, end: 20120923
  3. PYOSTACINE [Interacting]
     Dosage: 3 G
     Route: 048
     Dates: start: 20120905
  4. OMEPRAZOLE [Interacting]
     Indication: GASTRIC ULCER
     Route: 048
  5. XATRAL [Concomitant]
     Indication: BENIGN PROSTATIC HYPERPLASIA
     Dosage: 10 mg
     Route: 048
     Dates: start: 20120908
  6. KARDEGIC [Concomitant]
     Indication: PERIPHERAL ARTERIAL OCCLUSIVE DISEASE
     Dosage: 75 mg
     Route: 048
     Dates: start: 20120829
  7. LASILIX [Concomitant]
     Indication: HYPERTENSION
     Dosage: 40 mg
     Route: 048
     Dates: start: 20120829
  8. PLAVIX [Concomitant]
     Indication: PERIPHERAL ARTERIAL OCCLUSIVE DISEASE
     Route: 048
     Dates: start: 20120829
  9. DOLIPRANE [Concomitant]
     Dosage: 4 G
     Route: 048
     Dates: start: 20120905
  10. CRESTOR [Concomitant]
     Indication: HYPERCHOLESTEROLAEMIA
     Dosage: 10 mg
     Route: 048
  11. EZETROL [Concomitant]
     Indication: HYPERCHOLESTEROLAEMIA
     Dosage: 10 mg
     Route: 048
  12. PROCORALAN [Concomitant]
     Indication: ANGINA PECTORIS
     Route: 048
  13. INSPRA [Concomitant]
     Indication: MYOCARDIAL ISCHAEMIA
     Route: 048
  14. AMIODARONE [Concomitant]
     Indication: ARRHYTHMIA
     Route: 048
  15. LOSARTAN POTASSIUM [Concomitant]
     Indication: HYPERTENSION

REACTIONS (2)
  - Vomiting [Recovered/Resolved]
  - Drug interaction [Recovered/Resolved]
